FAERS Safety Report 6864793-6 (Version None)
Quarter: 2010Q3

REPORT INFORMATION
  Report Type: 
  Country: None (occurrence: None)
  Receive Date: 20100721
  Receipt Date: 20080407
  Transmission Date: 20110219
  Serious: No
  Sender: FDA-Public Use
  Company Number: US-PFIZER INC-2008029973

PATIENT
  Sex: Male

DRUGS (1)
  1. CHANTIX [Suspect]
     Dates: start: 20080402

REACTIONS (4)
  - DEPRESSION [None]
  - INFLUENZA LIKE ILLNESS [None]
  - NAUSEA [None]
  - TINNITUS [None]
